FAERS Safety Report 5292459-5 (Version None)
Quarter: 2007Q2

REPORT INFORMATION
  Report Type: 
  Country: None (occurrence: None)
  Receive Date: 20070410
  Receipt Date: 20070404
  Transmission Date: 20071010
  Serious: Yes (Other)
  Sender: FDA-Public Use
  Company Number: US-GENENTECH-239559

PATIENT
  Age: 24 Year
  Sex: Female

DRUGS (3)
  1. AVASTIN [Suspect]
     Indication: INFLAMMATORY CARCINOMA OF THE BREAST
  2. CARBOPLATIN [Concomitant]
     Indication: INFLAMMATORY CARCINOMA OF THE BREAST
  3. GEMCITABINE [Concomitant]
     Indication: INFLAMMATORY CARCINOMA OF THE BREAST

REACTIONS (4)
  - DIPLOPIA [None]
  - DIZZINESS [None]
  - HEADACHE [None]
  - PAPILLOEDEMA [None]
